FAERS Safety Report 7286931-6 (Version None)
Quarter: 2011Q1

REPORT INFORMATION
  Report Type: 
  Country: None (occurrence: None)
  Receive Date: 20110211
  Receipt Date: 20110131
  Transmission Date: 20110831
  Serious: Yes (Other)
  Sender: FDA-Public Use
  Company Number: BR-BIOGENIDEC-2010BI041119

PATIENT
  Age: 47 Year
  Sex: Female

DRUGS (4)
  1. VENLAFAXINE [Concomitant]
     Indication: DEPRESSION
  2. AVONEX [Suspect]
     Indication: MULTIPLE SCLEROSIS
     Route: 030
     Dates: start: 20090409
  3. RIVOTRIL [Concomitant]
     Indication: SLEEP DISORDER
  4. CELESTAMINE TAB [Concomitant]
     Indication: RHINITIS

REACTIONS (10)
  - HIV INFECTION [None]
  - ONYCHALGIA [None]
  - PAIN [None]
  - MOBILITY DECREASED [None]
  - MALAISE [None]
  - ANAEMIA [None]
  - TOOTHACHE [None]
  - ASTHENIA [None]
  - ORAL MUCOSAL DISCOLOURATION [None]
  - LEUKOPENIA [None]
